FAERS Safety Report 9107487 (Version 3)
Quarter: 2013Q1

REPORT INFORMATION
  Report Type: Spontaneous
  Country: DE (occurrence: DE)
  Receive Date: 20130221
  Receipt Date: 20130312
  Transmission Date: 20140127
  Serious: Yes (Other)
  Sender: FDA-Public Use
  Company Number: DE-ASTRAZENECA-2013SE00213

PATIENT
  Age: 56 Year
  Sex: Female
  Weight: 68 kg

DRUGS (2)
  1. BLOPRESS PLUS [Suspect]
     Indication: HYPERTENSION
     Dosage: 32 MG OF CANDESARTAN CILEXETIL/25MG OF HYDROCHLOROTHIAZIDE DAILY
     Route: 048
     Dates: start: 20121028, end: 20121031
  2. PANTOZOL [Concomitant]
     Route: 065

REACTIONS (5)
  - Dyspnoea [Recovered/Resolved]
  - Dyspepsia [Not Recovered/Not Resolved]
  - Visual impairment [Recovered/Resolved]
  - Asthenia [Recovered/Resolved]
  - Cough [Recovered/Resolved]
